FAERS Safety Report 5805991-X (Version None)
Quarter: 2008Q3

REPORT INFORMATION
  Report Type: 
  Country: None (occurrence: None)
  Receive Date: 20080710
  Receipt Date: 20080707
  Transmission Date: 20090109
  Serious: Yes (Hospitalization)
  Sender: FDA-Public Use
  Company Number: B0523668A

PATIENT
  Age: 79 Year
  Sex: Male
  Weight: 50 kg

DRUGS (2)
  1. ARIXTRA [Suspect]
     Indication: THROMBOSIS PROPHYLAXIS
     Dosage: 1.5MG PER DAY
     Route: 058
     Dates: start: 20080503, end: 20080514
  2. ASPIRIN [Concomitant]
     Indication: CEREBRAL INFARCTION
     Dosage: 100MG PER DAY
     Route: 048
     Dates: start: 20080423

REACTIONS (3)
  - HAEMOGLOBIN DECREASED [None]
  - OEDEMA PERIPHERAL [None]
  - POST PROCEDURAL HAEMORRHAGE [None]
